FAERS Safety Report 5233207-4 (Version None)
Quarter: 2007Q1

REPORT INFORMATION
  Report Type: 
  Country: None (occurrence: None)
  Receive Date: 20070207
  Receipt Date: 20070130
  Transmission Date: 20070707
  Serious: Yes (Other)
  Sender: FDA-Public Use
  Company Number: US-PFIZER INC-2007008868

PATIENT
  Sex: Female
  Weight: 80.7 kg

DRUGS (4)
  1. LYRICA [Suspect]
     Indication: SCIATICA
  2. MOTRIN [Suspect]
     Indication: INFLAMMATION
  3. VICODIN [Concomitant]
  4. OXYCODONE HCL [Concomitant]
     Dates: start: 20061001

REACTIONS (3)
  - DIPLOPIA [None]
  - OEDEMA PERIPHERAL [None]
  - SURGERY [None]
